FAERS Safety Report 11851742 (Version 1)
Quarter: 2015Q4

REPORT INFORMATION
  Report Type: Spontaneous
  Country: BR (occurrence: BR)
  Receive Date: 20151218
  Receipt Date: 20151218
  Transmission Date: 20160305
  Serious: Yes (Hospitalization, Other)
  Sender: FDA-Public Use
  Company Number: BR-PFIZER INC-2015395383

PATIENT
  Age: 23 Year
  Sex: Female

DRUGS (6)
  1. RISS /01143201/ [Concomitant]
     Dosage: 1 MG, UNK
     Dates: start: 201511
  2. GARDENAL /00023201/ [Suspect]
     Active Substance: PHENOBARBITAL
     Indication: SEIZURE
     Dosage: 100 MG, 1X/DAY
     Dates: start: 201412
  3. DEPO-PROVERA [Suspect]
     Active Substance: MEDROXYPROGESTERONE ACETATE
     Indication: CONTRACEPTION
     Dosage: 1 DF (AT ONE INJECTION)
     Dates: start: 201511
  4. TEGRETOL [Suspect]
     Active Substance: CARBAMAZEPINE
     Indication: SEIZURE
     Dosage: 200 MG, 1X/DAY
     Dates: start: 2013
  5. TORVAL [Suspect]
     Active Substance: VALPROIC ACID
     Indication: SEIZURE
     Dosage: 300 MG, 1X/DAY
     Dates: start: 201412
  6. TORVAL [Suspect]
     Active Substance: VALPROIC ACID
     Dosage: 500 MG, UNK
     Dates: end: 201511

REACTIONS (9)
  - Amnesia [Unknown]
  - Hypersomnia [Recovering/Resolving]
  - Diarrhoea [Unknown]
  - Metrorrhagia [Unknown]
  - Respiratory arrest [Recovered/Resolved]
  - Cerebral disorder [Not Recovered/Not Resolved]
  - Syncope [Recovered/Resolved]
  - Presyncope [Unknown]
  - Feeling abnormal [Unknown]

NARRATIVE: CASE EVENT DATE: 201511
